FAERS Safety Report 7578632-1 (Version None)
Quarter: 2011Q2

REPORT INFORMATION
  Report Type: 
  Country: None (occurrence: None)
  Receive Date: 20110628
  Receipt Date: 20110615
  Transmission Date: 20111010
  Serious: Yes (Other)
  Sender: FDA-Public Use
  Company Number: PHHY2011JP53378

PATIENT
  Age: 10 Year

DRUGS (2)
  1. NEORAL [Suspect]
     Indication: LIVER TRANSPLANT
     Dosage: UNK
     Route: 048
  2. NEORAL [Suspect]
     Indication: DERMATITIS ATOPIC

REACTIONS (2)
  - DERMATITIS ATOPIC [None]
  - DRUG INEFFECTIVE [None]
